FAERS Safety Report 23248558 (Version 2)
Quarter: 2023Q4

REPORT INFORMATION
  Report Type: Report from Study
  Country: ES (occurrence: ES)
  Receive Date: 20231201
  Receipt Date: 20231228
  Transmission Date: 20240110
  Serious: Yes (Hospitalization, Other)
  Sender: FDA-Public Use
  Company Number: ES-BIOVITRUM-2023-ES-015530

PATIENT
  Age: 63 Year
  Sex: Male

DRUGS (14)
  1. DOPTELET [Suspect]
     Active Substance: AVATROMBOPAG MALEATE
     Indication: Immune thrombocytopenia
     Dosage: DAILY
     Dates: start: 20230427, end: 20230516
  2. DOPTELET [Suspect]
     Active Substance: AVATROMBOPAG MALEATE
     Dosage: DAILY
     Dates: start: 20230427, end: 20230517
  3. DOPTELET [Suspect]
     Active Substance: AVATROMBOPAG MALEATE
     Dosage: DOSE DECREASED
     Dates: start: 20230517, end: 20230927
  4. DOPTELET [Suspect]
     Active Substance: AVATROMBOPAG MALEATE
     Dosage: DOSE DECREASED
     Dates: start: 20230517
  5. DOPTELET [Suspect]
     Active Substance: AVATROMBOPAG MALEATE
     Dosage: DOSE DECREASED
     Dates: start: 20230928
  6. DOPTELET [Suspect]
     Active Substance: AVATROMBOPAG MALEATE
     Dosage: DOSE DECREASED
     Dates: start: 20230928, end: 20231016
  7. DOPTELET [Suspect]
     Active Substance: AVATROMBOPAG MALEATE
     Dosage: DOSE INCREASED
     Dates: start: 20231102
  8. DOPTELET [Suspect]
     Active Substance: AVATROMBOPAG MALEATE
     Dosage: DOSE INCREASED
     Dates: start: 20231102
  9. DOPTELET [Suspect]
     Active Substance: AVATROMBOPAG MALEATE
     Dosage: DAILY (QD), DOSE INCREASED
     Dates: start: 20231017, end: 20231101
  10. DOPTELET [Suspect]
     Active Substance: AVATROMBOPAG MALEATE
     Dosage: DAILY (QD) , DOSE DECREASED
     Dates: start: 20231123, end: 20231220
  11. DOPTELET [Suspect]
     Active Substance: AVATROMBOPAG MALEATE
     Dosage: DAILY (QD) DOSE DECREASED
     Dates: start: 20231123, end: 20231220
  12. DOPTELET [Suspect]
     Active Substance: AVATROMBOPAG MALEATE
     Dosage: DAILY (QD) DOSE DECREASED
     Dates: start: 20231221
  13. ROMIPLOSTIM [Concomitant]
     Active Substance: ROMIPLOSTIM
     Indication: Immune thrombocytopenia
     Dosage: WEEKLY
     Route: 042
     Dates: start: 20230403, end: 20230427
  14. DEXAMETHASONE [Concomitant]
     Active Substance: DEXAMETHASONE
     Indication: Immune thrombocytopenia
     Dosage: 40 MG DAILY
     Route: 048
     Dates: start: 20231016, end: 20231119

REACTIONS (4)
  - Immune thrombocytopenia [Recovered/Resolved]
  - Condition aggravated [Recovered/Resolved]
  - General physical health deterioration [Recovered/Resolved]
  - COVID-19 [Not Recovered/Not Resolved]

NARRATIVE: CASE EVENT DATE: 20230728
